FAERS Safety Report 18170003 (Version 1)
Quarter: 2020Q3

REPORT INFORMATION
  Report Type: Spontaneous
  Country: CA (occurrence: CA)
  Receive Date: 20200819
  Receipt Date: 20200819
  Transmission Date: 20201103
  Serious: Yes (Life-Threatening, Hospitalization, Other)
  Sender: FDA-Public Use
  Company Number: CA-ACCORD-195806

PATIENT
  Age: 7 Year
  Sex: Female
  Weight: 35 kg

DRUGS (7)
  1. MERCAPTOPURINE/MERCAPTOPURINE ANHYDROUS [Suspect]
     Active Substance: MERCAPTOPURINE
     Indication: ACUTE LYMPHOCYTIC LEUKAEMIA
     Route: 048
  2. METHOTREXATE. [Suspect]
     Active Substance: METHOTREXATE
     Indication: ACUTE LYMPHOCYTIC LEUKAEMIA
     Route: 048
  3. SEPTRA [Concomitant]
     Active Substance: SULFAMETHOXAZOLE\TRIMETHOPRIM
  4. MELATONIN [Concomitant]
     Active Substance: MELATONIN
  5. ONDANSETRON [Concomitant]
     Active Substance: ONDANSETRON
  6. SENOKOT [Concomitant]
     Active Substance: SENNOSIDES
  7. OMEPRAZOLE. [Concomitant]
     Active Substance: OMEPRAZOLE

REACTIONS (3)
  - Pyrexia [Unknown]
  - Influenza B virus test positive [Unknown]
  - Neutropenia [Unknown]
